FAERS Safety Report 9288476 (Version 3)
Quarter: 2014Q2

REPORT INFORMATION
  Report Type: Spontaneous
  Country: US (occurrence: US)
  Receive Date: 20130514
  Receipt Date: 20140623
  Transmission Date: 20141212
  Serious: Yes (Other)
  Sender: FDA-Public Use
  Company Number: US-009507513-1305USA006139

PATIENT
  Sex: Male
  Weight: 84.81 kg

DRUGS (1)
  1. PROPECIA [Suspect]
     Indication: ALOPECIA
     Dosage: 1 MG, QD
     Route: 048
     Dates: start: 20050801, end: 20060619

REACTIONS (13)
  - Anaphylactic shock [Unknown]
  - Drug hypersensitivity [Unknown]
  - Hypogonadism [Unknown]
  - Sexual dysfunction [Not Recovered/Not Resolved]
  - Erectile dysfunction [Not Recovered/Not Resolved]
  - Libido decreased [Unknown]
  - Testicular pain [Unknown]
  - Asthenia [Unknown]
  - Hypotonia [Unknown]
  - Lumbar puncture [Unknown]
  - Dural tear [Unknown]
  - Concussion [Unknown]
  - Blood testosterone decreased [Unknown]
